FAERS Safety Report 5339125-5 (Version None)
Quarter: 2007Q2

REPORT INFORMATION
  Report Type: 
  Country: None (occurrence: None)
  Receive Date: 20070330
  Receipt Date: 20060810
  Transmission Date: 20071010
  Serious: Yes (Hospitalization)
  Sender: FDA-Public Use
  Company Number: 2006EN000151

PATIENT
  Age: 15 Year
  Sex: Male
  Weight: 55 kg

DRUGS (2)
  1. ONCASPAR [Suspect]
     Indication: ACUTE LYMPHOCYTIC LEUKAEMIA
     Dosage: 4075 IU, IM
     Route: 030
     Dates: end: 20060808
  2. VINCRISTINE [Concomitant]

REACTIONS (5)
  - FATIGUE [None]
  - HEADACHE [None]
  - NAUSEA [None]
  - PYREXIA [None]
  - RASH [None]
